FAERS Safety Report 5063477-7 (Version None)
Quarter: 2006Q3

REPORT INFORMATION
  Report Type: 
  Country: None (occurrence: None)
  Receive Date: 20060727
  Receipt Date: 20060718
  Transmission Date: 20061208
  Serious: Yes (Other)
  Sender: FDA-Public Use
  Company Number: GB-GLAXOSMITHKLINE-B0431787A

PATIENT
  Sex: Female

DRUGS (4)
  1. PAROXETINE HCL [Suspect]
     Route: 065
  2. PAROXETINE HYDROCHLORIDE [Suspect]
     Route: 048
  3. ST JOHNS WORT [Concomitant]
     Route: 065
  4. HOMEOPATHIC MEDICATION [Concomitant]
     Route: 065

REACTIONS (14)
  - ANAEMIA [None]
  - ANXIETY [None]
  - CONDITION AGGRAVATED [None]
  - DEPRESSION [None]
  - DISTURBANCE IN ATTENTION [None]
  - DRUG WITHDRAWAL SYNDROME [None]
  - GENERAL PHYSICAL HEALTH DETERIORATION [None]
  - IRRITABILITY [None]
  - MEMORY IMPAIRMENT [None]
  - MENORRHAGIA [None]
  - MOOD SWINGS [None]
  - SENSORY DISTURBANCE [None]
  - SUICIDAL IDEATION [None]
  - VISION BLURRED [None]
